FAERS Safety Report 10192301 (Version 1)
Quarter: 2014Q2

REPORT INFORMATION
  Report Type: Spontaneous
  Country: BE (occurrence: BE)
  Receive Date: 20140523
  Receipt Date: 20140523
  Transmission Date: 20141212
  Serious: Yes (Hospitalization, Other)
  Sender: FDA-Public Use
  Company Number: PHHY2014BE060304

PATIENT
  Age: 38 Year
  Sex: Female

DRUGS (6)
  1. CLOZAPINE SANDOZ [Suspect]
     Indication: SCHIZOPHRENIA
     Dosage: 25 MG, TID
     Route: 048
     Dates: start: 20140512, end: 20140512
  2. LEPONEX / CLOZARIL (CLOZAPINE) [Suspect]
     Dosage: 3 DF, UNK
     Dates: start: 201404
  3. SIPRALEXA [Concomitant]
  4. TRAZODONE [Concomitant]
     Dates: end: 20140514
  5. TEMESTA [Concomitant]
     Dosage: 10 MG, UNK
  6. TEMESTA [Concomitant]
     Dosage: 2 MG, UNK

REACTIONS (10)
  - Malaise [Recovered/Resolved]
  - C-reactive protein increased [Unknown]
  - Viral infection [Unknown]
  - Hypotension [Not Recovered/Not Resolved]
  - Pyrexia [Not Recovered/Not Resolved]
  - Urinary incontinence [Recovered/Resolved]
  - General physical health deterioration [Unknown]
  - Loss of consciousness [Unknown]
  - Wrong drug administered [Unknown]
  - Salivary hypersecretion [Recovering/Resolving]
